FAERS Safety Report 9275112 (Version 1)
Quarter: 2013Q2

REPORT INFORMATION
  Report Type: Report from Study
  Country: MX (occurrence: MX)
  Receive Date: 20130507
  Receipt Date: 20130507
  Transmission Date: 20140414
  Serious: Yes (Hospitalization)
  Sender: FDA-Public Use
  Company Number: PHHY2013MX044584

PATIENT
  Age: 66 Year
  Sex: Female

DRUGS (2)
  1. CO-DIOVAN [Suspect]
     Indication: HYPERTENSION
     Dosage: 1 DF (160 MG VALS AND 12.5 MG HCTZ), DAILY
     Route: 048
     Dates: start: 200705
  2. CO-DIOVAN [Suspect]
     Dosage: 1 DF (80 MG VALS AND 12.5 MG HCTZ), DAILY
     Route: 048

REACTIONS (1)
  - General physical health deterioration [Recovered/Resolved]
